FAERS Safety Report 13940865 (Version 2)
Quarter: 2021Q1

REPORT INFORMATION
  Report Type: Spontaneous
  Country: US (occurrence: US)
  Receive Date: 20170906
  Receipt Date: 20210112
  Transmission Date: 20210419
  Serious: Yes (Hospitalization, Other)
  Sender: FDA-Public Use
  Company Number: US-MYLANLABS-2017M1054879

PATIENT
  Age: 16 Year
  Sex: Male

DRUGS (3)
  1. VALPROIC ACID. [Suspect]
     Active Substance: VALPROIC ACID
     Dosage: 15MG/KG
     Route: 050
  2. LEVETIRACETAM. [Concomitant]
     Active Substance: LEVETIRACETAM
     Indication: EPILEPSY
     Route: 065
  3. VALPROIC ACID. [Suspect]
     Active Substance: VALPROIC ACID
     Indication: EPILEPSY
     Dosage: INITIAL DOSE NOT STATED....
     Route: 065

REACTIONS (8)
  - Acute kidney injury [Unknown]
  - Thrombotic microangiopathy [Recovering/Resolving]
  - Metabolic acidosis [Unknown]
  - Hepatic function abnormal [Recovering/Resolving]
  - Lactic acidosis [Recovering/Resolving]
  - Multiple organ dysfunction syndrome [Unknown]
  - Toxicity to various agents [Recovering/Resolving]
  - Drug-induced liver injury [Recovered/Resolved]
